FAERS Safety Report 4709389-7 (Version None)
Quarter: 2005Q3

REPORT INFORMATION
  Report Type: 
  Country: None (occurrence: None)
  Receive Date: 20050708
  Receipt Date: 20050704
  Transmission Date: 20060218
  Serious: Yes (Life-Threatening)
  Sender: FDA-Public Use
  Company Number: PHNR2005AU01047

PATIENT
  Sex: 0

DRUGS (1)
  1. RITALIN LA [Suspect]
     Dosage: 60 MG , DAILY
     Route: 048
     Dates: start: 19950317, end: 20040422

REACTIONS (2)
  - CARDIAC ARREST [None]
  - VENTRICULAR FIBRILLATION [None]
